FAERS Safety Report 7846443-5 (Version None)
Quarter: 2011Q4

REPORT INFORMATION
  Report Type: 
  Country: None (occurrence: None)
  Receive Date: 20111025
  Receipt Date: 20111025
  Transmission Date: 20120403
  Serious: No
  Sender: FDA-Public Use
  Company Number: None

PATIENT
  Age: 30 Year
  Sex: Female
  Weight: 65.77 kg

DRUGS (1)
  1. LEVAQUIN [Suspect]
     Indication: POSTOPERATIVE CARE
     Dosage: 750MG
     Route: 048
     Dates: start: 20090322, end: 20090329

REACTIONS (5)
  - TENDONITIS [None]
  - HYPERGLYCAEMIA [None]
  - NEUROPATHY PERIPHERAL [None]
  - PAIN [None]
  - NERVOUS SYSTEM DISORDER [None]
